FAERS Safety Report 5875873-6 (Version None)
Quarter: 2008Q3

REPORT INFORMATION
  Report Type: 
  Country: None (occurrence: None)
  Receive Date: 20080908
  Receipt Date: 20080528
  Transmission Date: 20090109
  Serious: No
  Sender: FDA-Public Use
  Company Number: ADE#  08-078

PATIENT
  Sex: 0

DRUGS (1)
  1. EXTENDED PHENYTOIN SODIUM CAPSULES, USP, 100MG [Suspect]
     Dosage: 5 CAPSULES DAILY
     Dates: start: 20080420, end: 20080501

REACTIONS (2)
  - ANTICONVULSANT DRUG LEVEL INCREASED [None]
  - PHARMACEUTICAL PRODUCT COMPLAINT [None]
